FAERS Safety Report 6769685-9 (Version None)
Quarter: 2010Q2

REPORT INFORMATION
  Report Type: 
  Country: None (occurrence: None)
  Receive Date: 20100615
  Receipt Date: 20100610
  Transmission Date: 20101027
  Serious: Yes (Death, Hospitalization)
  Sender: FDA-Public Use
  Company Number: GB-ROCHE-553610

PATIENT
  Sex: Female

DRUGS (11)
  1. CAPECITABINE [Suspect]
     Indication: COLON CANCER
     Route: 048
     Dates: start: 20080116
  2. BEVACIZUMAB [Suspect]
     Indication: COLON CANCER
     Route: 042
     Dates: start: 20080116
  3. METOCLOPRAMIDE [Concomitant]
     Indication: NAUSEA
     Route: 048
  4. OMEPRAZOLE [Concomitant]
     Dosage: INDICATION REPORTED AS GASTRIC.
     Route: 048
  5. CODEINE SULFATE [Concomitant]
     Indication: PAIN
     Route: 048
  6. SIMVASTATIN [Concomitant]
     Route: 048
  7. LEVOTHYROXINE SODIUM [Concomitant]
     Indication: HYPOTHYROIDISM
     Route: 048
  8. ATENOLOL [Concomitant]
     Indication: HYPERTENSION
     Route: 048
  9. CITALOPRAM HYDROBROMIDE [Concomitant]
     Indication: DEPRESSION
     Route: 048
  10. PYRIDOXINE HCL [Concomitant]
     Dosage: INDICATION REPORTED AS PPF.
     Route: 048
  11. TEMAZEPAM [Concomitant]
     Indication: SOMNOLENCE
     Route: 048

REACTIONS (1)
  - DEHYDRATION [None]
